FAERS Safety Report 5913409-1 (Version None)
Quarter: 2008Q4

REPORT INFORMATION
  Report Type: 
  Country: None (occurrence: None)
  Receive Date: 20081008
  Receipt Date: 20081008
  Transmission Date: 20090506
  Serious: Yes (Hospitalization)
  Sender: FDA-Public Use
  Company Number: None

PATIENT
  Sex: Male
  Weight: 109 kg

DRUGS (13)
  1. IRINOTECAN HYDROCHLORIDE [Suspect]
     Indication: GLIOBLASTOMA MULTIFORME
     Dosage: 125MG/M2 DAY 1, 8, 22, 29 IV
     Route: 042
     Dates: start: 20070227, end: 20070306
  2. TEMODAR [Suspect]
     Indication: GLIOBLASTOMA MULTIFORME
     Dosage: 200MG/M2 DAYS 1-5 PO
     Route: 048
     Dates: start: 20070227, end: 20070303
  3. DECADRON [Concomitant]
  4. LORTAB [Concomitant]
  5. CELEXA [Concomitant]
  6. ZOFRAN [Concomitant]
  7. PEPCID [Concomitant]
  8. IMODIUM [Concomitant]
  9. MULTI-VITAMIN [Concomitant]
  10. ASCORBIC ACID [Concomitant]
  11. CALTRATE [Concomitant]
  12. VITAMIN E [Concomitant]
  13. FIBER [Concomitant]

REACTIONS (11)
  - BRAIN SCAN ABNORMAL [None]
  - CEREBRAL VENTRICLE DILATATION [None]
  - DEVICE MALFUNCTION [None]
  - DISEASE PROGRESSION [None]
  - HEADACHE [None]
  - INFECTION [None]
  - MALIGNANT NEOPLASM PROGRESSION [None]
  - MEDICAL DEVICE COMPLICATION [None]
  - MENINGEAL DISORDER [None]
  - POST PROCEDURAL COMPLICATION [None]
  - VISION BLURRED [None]
